FAERS Safety Report 8923125 (Version 1)
Quarter: 2012Q4

REPORT INFORMATION
  Report Type: 
  Country: US (occurrence: US)
  Receive Date: 20121123
  Receipt Date: 20121123
  Transmission Date: 20130627
  Serious: Yes (Hospitalization)
  Sender: FDA-Public Use
  Company Number: PHEH2012US022767

PATIENT
  Age: 77 Year
  Sex: Female

DRUGS (1)
  1. FANAPT [Suspect]
     Dosage: 1 ug, BID

REACTIONS (1)
  - Coma [Recovered/Resolved]
